FAERS Safety Report 4662375-8 (Version None)
Quarter: 2005Q2

REPORT INFORMATION
  Report Type: 
  Country: None (occurrence: None)
  Receive Date: 20050512
  Receipt Date: 20050426
  Transmission Date: 20051028
  Serious: Yes (Other)
  Sender: FDA-Public Use
  Company Number: US_0504115099

PATIENT
  Age: 19 Year
  Sex: Male
  Weight: 70 kg

DRUGS (1)
  1. STRATTERA [Suspect]
     Dates: start: 20001014, end: 20050315

REACTIONS (3)
  - HEPATITIS INFECTIOUS MONONUCLEOSIS [None]
  - SLEEP DISORDER [None]
  - THROMBOCYTOPENIA [None]
